FAERS Safety Report 6086255-9 (Version None)
Quarter: 2009Q1

REPORT INFORMATION
  Report Type: 
  Country: None (occurrence: None)
  Receive Date: 20090220
  Receipt Date: 20090210
  Transmission Date: 20090719
  Serious: Yes (Hospitalization, Other)
  Sender: FDA-Public Use
  Company Number: CH-ROXANE LABORATORIES, INC.-2009-RO-00138RO

PATIENT
  Age: 53 Year
  Sex: Male

DRUGS (5)
  1. LORAZEPAM [Suspect]
     Dosage: 1MG
  2. LAMOTRIGINE [Suspect]
     Dosage: 300MG
  3. LITHIUM SULPHATE [Suspect]
     Indication: SCHIZOAFFECTIVE DISORDER
  4. AMISULPRIDE [Suspect]
     Dosage: 800MG
  5. ESCITALOPRAM [Suspect]
     Dosage: 20MG

REACTIONS (9)
  - AKATHISIA [None]
  - CHOREOATHETOSIS [None]
  - COGNITIVE DISORDER [None]
  - DELUSION [None]
  - DRUG INTERACTION [None]
  - DYSARTHRIA [None]
  - MYOCLONUS [None]
  - THERAPEUTIC AGENT TOXICITY [None]
  - TRANSAMINASES INCREASED [None]
